FAERS Safety Report 9988221 (Version 2)
Quarter: 2014Q1

REPORT INFORMATION
  Report Type: Spontaneous
  Country: US (occurrence: US)
  Receive Date: 20140309
  Receipt Date: 20140309
  Transmission Date: 20141002
  Serious: Yes (Other)
  Sender: FDA-Public Use
  Company Number: US-GE HEALTHCARE MEDICAL DIAGNOSTICS-OSCN-PR-0902S-0128

PATIENT
  Age: 35 Year
  Sex: Female

DRUGS (2)
  1. OMNISCAN [Suspect]
     Indication: CYST
     Route: 042
     Dates: start: 20050906, end: 20050906
  2. OMNISCAN [Suspect]
     Indication: OBSTRUCTION
     Route: 042
     Dates: start: 20051013, end: 20051013

REACTIONS (1)
  - Nephrogenic systemic fibrosis [Not Recovered/Not Resolved]
